FAERS Safety Report 24655716 (Version 1)
Quarter: 2024Q4

REPORT INFORMATION
  Report Type: Report from Study
  Country: CO (occurrence: CO)
  Receive Date: 20241123
  Receipt Date: 20241123
  Transmission Date: 20250115
  Serious: Yes (Other)
  Sender: ABBVIE
  Company Number: CO-ABBVIE-5879769

PATIENT
  Age: 66 Year
  Sex: Female
  Weight: 65 kg

DRUGS (7)
  1. RINVOQ [Suspect]
     Active Substance: UPADACITINIB
     Indication: Rheumatoid arthritis
     Dosage: FORM STRENGTH 15 MILLIGRAM
     Route: 048
     Dates: start: 20231228, end: 20240723
  2. RINVOQ [Suspect]
     Active Substance: UPADACITINIB
     Indication: Rheumatoid arthritis
     Dosage: FORM STRENGTH 15 MILLIGRAM
     Route: 048
     Dates: start: 20241002
  3. TIZANIDINE [Concomitant]
     Active Substance: TIZANIDINE
     Indication: Muscle relaxant therapy
     Route: 065
     Dates: start: 2023
  4. COLCHICINE [Concomitant]
     Active Substance: COLCHICINE
     Indication: Product used for unknown indication
     Dosage: START DATE TEXT: NOT REPORTED?FREQUENCY TEXT: 1 DAILY
     Route: 065
  5. ACETAMINOPHEN\TRAMADOL [Concomitant]
     Active Substance: ACETAMINOPHEN\TRAMADOL
     Indication: Pain management
     Route: 065
  6. ACETAMINOPHEN\TRAMADOL [Concomitant]
     Active Substance: ACETAMINOPHEN\TRAMADOL
     Indication: Pain management
     Dosage: TIME INTERVAL: 0.33333333 DAYS
     Route: 065
  7. CELECOXIB [Concomitant]
     Active Substance: CELECOXIB
     Indication: Antiinflammatory therapy
     Route: 065
     Dates: start: 2022

REACTIONS (11)
  - Tendon rupture [Unknown]
  - Limb injury [Unknown]
  - Rheumatoid arthritis [Not Recovered/Not Resolved]
  - Toothache [Not Recovered/Not Resolved]
  - Pain [Not Recovered/Not Resolved]
  - Muscle rupture [Unknown]
  - Muscle disorder [Unknown]
  - Tendon injury [Unknown]
  - Inflammation [Unknown]
  - Osteitis [Unknown]
  - Therapeutic product effect decreased [Unknown]

NARRATIVE: CASE EVENT DATE: 20231201
